FAERS Safety Report 21681398 (Version 1)
Quarter: 2022Q4

REPORT INFORMATION
  Report Type: Spontaneous
  Country: GB (occurrence: GB)
  Receive Date: 20221205
  Receipt Date: 20221205
  Transmission Date: 20230113
  Serious: Yes (Other)
  Sender: FDA-Public Use
  Company Number: None

PATIENT
  Sex: Female
  Weight: 54 kg

DRUGS (4)
  1. ESCITALOPRAM [Suspect]
     Active Substance: ESCITALOPRAM OXALATE
     Indication: Generalised anxiety disorder
     Dosage: ONCE A DAY, VARIOUS DOSES SINCE 2018. WORSE EAR PRESSURE AT 20 MG.; ;
     Route: 065
     Dates: start: 20181210
  2. CYPROTERONE ACETATE\ETHINYL ESTRADIOL [Concomitant]
     Active Substance: CYPROTERONE ACETATE\ETHINYL ESTRADIOL
     Indication: Polycystic ovaries
     Dosage: UNKNOWN
     Route: 065
  3. MIRTAZAPINE [Concomitant]
     Active Substance: MIRTAZAPINE
     Indication: Product used for unknown indication
     Dosage: UNKNOWN
     Route: 065
  4. PROMETHAZINE [Concomitant]
     Active Substance: PROMETHAZINE HYDROCHLORIDE
     Indication: Poor quality sleep
     Dosage: UNKNOWN
     Route: 065

REACTIONS (7)
  - Ear discomfort [Not Recovered/Not Resolved]
  - Blood pressure increased [Unknown]
  - Balance disorder [Unknown]
  - Disorientation [Unknown]
  - Eustachian tube dysfunction [Unknown]
  - Loss of personal independence in daily activities [Unknown]
  - Hypoacusis [Unknown]
